FAERS Safety Report 6182462-5 (Version None)
Quarter: 2009Q2

REPORT INFORMATION
  Report Type: 
  Country: None (occurrence: None)
  Receive Date: 20090507
  Receipt Date: 20090424
  Transmission Date: 20091009
  Serious: Yes (Life-Threatening, Hospitalization)
  Sender: FDA-Public Use
  Company Number: GR-ROCHE-629428

PATIENT
  Age: 27 Year
  Sex: Male

DRUGS (1)
  1. ROFERON-A [Suspect]
     Indication: ESSENTIAL THROMBOCYTHAEMIA
     Route: 058
     Dates: start: 20081128, end: 20090401

REACTIONS (1)
  - HEART TRANSPLANT REJECTION [None]
